FAERS Safety Report 8344066-5 (Version None)
Quarter: 2012Q2

REPORT INFORMATION
  Report Type: 
  Country: None (occurrence: None)
  Receive Date: 20120508
  Receipt Date: 20110217
  Transmission Date: 20120825
  Serious: No
  Sender: FDA-Public Use
  Company Number: US-TEVA-2011000645

PATIENT
  Sex: Female
  Weight: 55 kg

DRUGS (1)
  1. TREANDA [Suspect]
     Indication: CHRONIC LYMPHOCYTIC LEUKAEMIA
     Route: 042
     Dates: start: 20110201

REACTIONS (3)
  - SKIN DISCOLOURATION [None]
  - EXTRAVASATION [None]
  - ADMINISTRATION SITE PAIN [None]
